FAERS Safety Report 10761075 (Version 1)
Quarter: 2015Q1

REPORT INFORMATION
  Report Type: Spontaneous
  Country: US (occurrence: None)
  Receive Date: 20150202
  Receipt Date: 20150202
  Transmission Date: 20150721
  Serious: Yes (Other)
  Sender: FDA-Public Use
  Company Number: 201409012

PATIENT
  Age: 64 Year
  Sex: Male
  Weight: 92.99 kg

DRUGS (3)
  1. XIAFLEX [Suspect]
     Active Substance: COLLAGENASE CLOSTRIDIUM HISTOLYTICUM
     Indication: PEYRONIE^S DISEASE
     Dosage: INTRALESIONAL; 1 IN 1 D
     Dates: start: 201405, end: 201405
  2. LUNESTA [Concomitant]
     Active Substance: ESZOPICLONE
  3. ZANTAC [Concomitant]
     Active Substance: RANITIDINE HYDROCHLORIDE

REACTIONS (7)
  - Injection site swelling [None]
  - Penile swelling [None]
  - Injection site pain [None]
  - Local swelling [None]
  - Injection site bruising [None]
  - Penile vascular disorder [None]
  - Drug ineffective [None]

NARRATIVE: CASE EVENT DATE: 2014
